FAERS Safety Report 16885964 (Version 1)
Quarter: 2019Q4

REPORT INFORMATION
  Report Type: Spontaneous
  Country: US (occurrence: US)
  Receive Date: 20191004
  Receipt Date: 20191004
  Transmission Date: 20200122
  Serious: No
  Sender: FDA-Public Use
  Company Number: US-TEVA-2019-US-1116723

PATIENT
  Age: 35 Year
  Sex: Male

DRUGS (1)
  1. CLONAZEPAM TEVA [Suspect]
     Active Substance: CLONAZEPAM
     Indication: ANXIETY
     Route: 065
     Dates: start: 1999

REACTIONS (12)
  - Withdrawal syndrome [Unknown]
  - Poor quality sleep [Unknown]
  - Marital problem [Unknown]
  - Anger [Unknown]
  - Aggression [Unknown]
  - Anxiety [Unknown]
  - Adverse drug reaction [Unknown]
  - Post-traumatic stress disorder [Unknown]
  - Pain [Unknown]
  - Product substitution issue [Unknown]
  - Vomiting [Unknown]
  - Malaise [Unknown]
